FAERS Safety Report 4360896-9 (Version None)
Quarter: 2004Q2

REPORT INFORMATION
  Report Type: 
  Country: None (occurrence: None)
  Receive Date: 20040520
  Receipt Date: 20040116
  Transmission Date: 20050107
  Serious: Yes (Hospitalization)
  Sender: FDA-Public Use
  Company Number: 200410190FR

PATIENT
  Age: 73 Year
  Sex: Male
  Weight: 57 kg

DRUGS (12)
  1. KETEK [Suspect]
     Route: 048
     Dates: start: 20031026, end: 20031028
  2. ACETAMINOPHEN [Suspect]
     Dosage: DOSE UNIT: UNITS
     Route: 048
     Dates: start: 20030702
  3. SILOMAT [Suspect]
     Dosage: DOSE UNIT: UNITS
     Route: 048
  4. ACETYLCYSTEINE [Suspect]
     Dosage: DOSE UNIT: UNITS
     Route: 048
     Dates: start: 20031022
  5. RHINADVIL [Suspect]
     Dosage: DOSE UNIT: UNITS
     Route: 048
     Dates: start: 20031022, end: 20031027
  6. KETOPROFEN [Suspect]
     Dosage: DOSE UNIT: UNITS
     Route: 061
     Dates: start: 20030920
  7. RULID [Concomitant]
     Route: 048
     Dates: start: 20030702
  8. ARNICA [Concomitant]
     Dates: start: 20031008
  9. TITANOREINE [Concomitant]
     Route: 054
     Dates: start: 20030920
  10. NEXEN [Concomitant]
     Route: 048
     Dates: start: 20030702
  11. DIMETANE [Concomitant]
     Dosage: DOSE UNIT: UNITS
     Route: 048
     Dates: start: 20030702
  12. NSAID'S [Concomitant]

REACTIONS (5)
  - BLOOD PRESSURE SYSTOLIC INCREASED [None]
  - CYTOLYTIC HEPATITIS [None]
  - HAEMOLYTIC URAEMIC SYNDROME [None]
  - HYPERSENSITIVITY [None]
  - NEPHROTIC SYNDROME [None]
